FAERS Safety Report 15275145 (Version 1)
Quarter: 2018Q3

REPORT INFORMATION
  Report Type: Spontaneous
  Country: US (occurrence: US)
  Receive Date: 20180814
  Receipt Date: 20180814
  Transmission Date: 20181010
  Serious: No
  Sender: FDA-Public Use
  Company Number: US-BAYER-2018-153038

PATIENT
  Age: 67 Year
  Sex: Female
  Weight: 56.96 kg

DRUGS (2)
  1. MIRALAX [Suspect]
     Active Substance: POLYETHYLENE GLYCOL 3350
     Dosage: ;3/4 DOSES FOR 3 DAYS DOSE
     Route: 048
     Dates: start: 20180809, end: 20180811
  2. METAMUCIL [Concomitant]
     Active Substance: PLANTAGO SEED

REACTIONS (2)
  - Pruritus generalised [Unknown]
  - Underdose [Unknown]

NARRATIVE: CASE EVENT DATE: 20180809
